FAERS Safety Report 11107304 (Version 1)
Quarter: 2015Q2

REPORT INFORMATION
  Report Type: Spontaneous
  Country: US (occurrence: None)
  Receive Date: 20150511
  Receipt Date: 20150511
  Transmission Date: 20150821
  Serious: Yes (Other)
  Sender: FDA-Public Use
  Company Number: None

PATIENT
  Age: 61 Year
  Sex: Male

DRUGS (2)
  1. OCTREOTIDE 100MCG FRESENIUS KABI USA [Suspect]
     Active Substance: OCTREOTIDE
     Indication: RECTAL CANCER
     Route: 058
     Dates: start: 20150415, end: 20150508
  2. OCTREOTIDE 100MCG FRESENIUS KABI USA [Suspect]
     Active Substance: OCTREOTIDE
     Indication: DIARRHOEA
     Route: 058
     Dates: start: 20150415, end: 20150508

REACTIONS (1)
  - Diarrhoea [None]

NARRATIVE: CASE EVENT DATE: 201505
